FAERS Safety Report 4748826-9 (Version None)
Quarter: 2005Q3

REPORT INFORMATION
  Report Type: 
  Country: None (occurrence: None)
  Receive Date: 20050817
  Receipt Date: 20050803
  Transmission Date: 20060218
  Serious: Yes (Hospitalization)
  Sender: FDA-Public Use
  Company Number: 2005BI010817

PATIENT
  Age: 44 Year
  Sex: Female

DRUGS (6)
  1. AVONEX [Suspect]
     Indication: MULTIPLE SCLEROSIS
     Dosage: 30 UG; QW; IM
     Route: 030
     Dates: start: 19970101, end: 20050101
  2. AVONEX [Suspect]
     Indication: MULTIPLE SCLEROSIS
     Dosage: 30 UG; QW; IM
     Route: 030
     Dates: start: 20050301
  3. FLOMAX [Concomitant]
  4. TOPROL-XL [Concomitant]
  5. ATIVAN [Concomitant]
  6. AMITRIPTYLINE HCL [Concomitant]

REACTIONS (6)
  - DIABETES MELLITUS [None]
  - HYPOTENSION [None]
  - KIDNEY INFECTION [None]
  - LUNG INFECTION [None]
  - SEPSIS [None]
  - URINARY TRACT INFECTION [None]
